FAERS Safety Report 23553151 (Version 1)
Quarter: 2024Q1

REPORT INFORMATION
  Report Type: Spontaneous
  Country: US (occurrence: None)
  Receive Date: 20240221
  Receipt Date: 20240221
  Transmission Date: 20240410
  Serious: Yes (Hospitalization)
  Sender: FDA-Public Use
  Company Number: None

PATIENT
  Age: 69 Year
  Sex: Female
  Weight: 123.75 kg

DRUGS (1)
  1. EVENITY [Suspect]
     Active Substance: ROMOSOZUMAB-AQQG
     Indication: Osteoporosis
     Dates: start: 20230609, end: 20231128

REACTIONS (8)
  - Injection site erythema [None]
  - Injection site swelling [None]
  - Headache [None]
  - Palpitations [None]
  - Dyspnoea [None]
  - Arrhythmia [None]
  - Atrial fibrillation [None]
  - Hypertension [None]

NARRATIVE: CASE EVENT DATE: 20231229
